FAERS Safety Report 10377990 (Version 2)
Quarter: 2014Q3

REPORT INFORMATION
  Report Type: Other
  Country: IT (occurrence: IT)
  Receive Date: 20140812
  Receipt Date: 20140812
  Transmission Date: 20150326
  Serious: Yes (Hospitalization)
  Sender: FDA-Public Use
  Company Number: IT-MYLAN-2014S1011547

PATIENT

DRUGS (6)
  1. VALSARTAN. [Concomitant]
     Active Substance: VALSARTAN
     Indication: HYPERTENSION
     Dosage: 160 MG,UNK
     Route: 048
  2. QUINAPRIL HCL AND HYDROCHLOROTHIAZIDE [Concomitant]
     Active Substance: HYDROCHLOROTHIAZIDE\QUINAPRIL HYDROCHLORIDE
     Indication: HYPERTENSION
     Dosage: 1 DF,UNK
     Route: 048
  3. OMEPRAZOLE SODIUM [Concomitant]
     Active Substance: OMEPRAZOLE SODIUM
     Indication: PROPHYLAXIS AGAINST GASTROINTESTINAL ULCER
     Dosage: 20 MG,UNK
     Route: 048
  4. LASIX [Concomitant]
     Active Substance: FUROSEMIDE
     Indication: HYPERTENSION
     Dosage: 25 MG,UNK
     Route: 048
  5. CARDIOASPIRIN [Concomitant]
     Active Substance: ASPIRIN
     Indication: CARDIOVASCULAR EVENT PROPHYLAXIS
     Dosage: 100 MG,UNK
     Route: 048
  6. LEVOFLOXACIN [Suspect]
     Active Substance: LEVOFLOXACIN
     Indication: BRONCHITIS
     Dosage: 1000 MG,QD
     Route: 048
     Dates: start: 20140428, end: 20140502

REACTIONS (10)
  - Tremor [Recovered/Resolved]
  - Medication error [Recovered/Resolved]
  - Dyskinesia [Recovered/Resolved]
  - Confusional state [Recovered/Resolved]
  - Atrial fibrillation [Recovered/Resolved]
  - Respiratory failure [Recovered/Resolved]
  - Dysphagia [Recovered/Resolved]
  - Incorrect dose administered [Recovered/Resolved]
  - Bronchitis [Recovered/Resolved]
  - Gait disturbance [Recovered/Resolved]

NARRATIVE: CASE EVENT DATE: 20140429
